FAERS Safety Report 8954873 (Version 1)
Quarter: 2012Q4

REPORT INFORMATION
  Report Type: 
  Country: US (occurrence: US)
  Receive Date: 20121207
  Receipt Date: 20121207
  Transmission Date: 20130627
  Serious: Yes (Other)
  Sender: FDA-Public Use
  Company Number: PHEH2012US023703

PATIENT
  Sex: Female

DRUGS (6)
  1. DIOVAN HCT [Suspect]
     Indication: BLOOD PRESSURE
     Dosage: 1 DF(160 mg vals/ 25 mg HCTZ), UNK
  2. METOPROLOL [Concomitant]
  3. AMLODIPINE [Concomitant]
  4. PLAVIX [Concomitant]
  5. CRESTOR [Concomitant]
  6. ASPIRIN [Concomitant]

REACTIONS (3)
  - Myocardial infarction [Unknown]
  - Dizziness [Unknown]
  - Wrong technique in drug usage process [Unknown]
